FAERS Safety Report 24155171 (Version 1)
Quarter: 2024Q3

REPORT INFORMATION
  Report Type: Report from Study
  Country: GB (occurrence: GB)
  Receive Date: 20240731
  Receipt Date: 20240731
  Transmission Date: 20241017
  Serious: Yes (Other)
  Sender: TAKEDA
  Company Number: GB-TAKEDA-2023TUS055779

PATIENT
  Sex: Female

DRUGS (2)
  1. VEDOLIZUMAB [Suspect]
     Active Substance: VEDOLIZUMAB
     Indication: Crohn^s disease
     Dosage: 108 MILLIGRAM, Q2WEEKS
     Route: 058
     Dates: start: 20230518
  2. VEDOLIZUMAB [Suspect]
     Active Substance: VEDOLIZUMAB
     Indication: Crohn^s disease
     Dosage: 108 MILLIGRAM, Q2WEEKS
     Route: 058
     Dates: start: 20230518

REACTIONS (15)
  - Addison^s disease [Unknown]
  - Breast cancer female [Unknown]
  - Abdominal pain lower [Unknown]
  - Pollakiuria [Unknown]
  - Diarrhoea [Unknown]
  - Platelet count decreased [Unknown]
  - Defaecation urgency [Unknown]
  - Pain [Unknown]
  - Illness [Unknown]
  - Fibromyalgia [Unknown]
  - Decreased appetite [Unknown]
  - Vomiting [Unknown]
  - Haemorrhoids [Unknown]
  - Back pain [Unknown]
  - Fatigue [Unknown]
